FAERS Safety Report 20599564 (Version 1)
Quarter: 2022Q1

REPORT INFORMATION
  Report Type: Spontaneous
  Country: FR (occurrence: FR)
  Receive Date: 20220316
  Receipt Date: 20220316
  Transmission Date: 20220423
  Serious: Yes (Other)
  Sender: FDA-Public Use
  Company Number: FR-AFSSAPS-PO20181410

PATIENT
  Age: 55 Year
  Sex: Male
  Weight: 91 kg

DRUGS (15)
  1. MELPHALAN [Suspect]
     Active Substance: MELPHALAN
     Indication: Waldenstrom^s macroglobulinaemia
     Dosage: UNK
     Route: 042
     Dates: start: 20110501, end: 20110531
  2. FLUDARABINE [Suspect]
     Active Substance: FLUDARABINE PHOSPHATE
     Indication: Waldenstrom^s macroglobulinaemia
     Dosage: UNK
     Route: 042
     Dates: start: 20091001, end: 20130919
  3. IMBRUVICA [Suspect]
     Active Substance: IBRUTINIB
     Indication: Waldenstrom^s macroglobulinaemia
     Dosage: 420 MILLIGRAM, ONCE A DAY
     Route: 048
     Dates: start: 20160412
  4. ETOPOSIDE [Suspect]
     Active Substance: ETOPOSIDE
     Indication: Waldenstrom^s macroglobulinaemia
     Dosage: UNK
     Route: 042
     Dates: start: 20110501, end: 20130729
  5. CARMUSTINE [Suspect]
     Active Substance: CARMUSTINE
     Indication: Waldenstrom^s macroglobulinaemia
     Dosage: UNK
     Route: 042
     Dates: start: 20110501, end: 20110531
  6. CYCLOPHOSPHAMIDE [Suspect]
     Active Substance: CYCLOPHOSPHAMIDE
     Indication: Waldenstrom^s macroglobulinaemia
     Dosage: UNK
     Route: 042
     Dates: start: 20091001, end: 20130729
  7. METHOTREXATE [Suspect]
     Active Substance: METHOTREXATE
     Indication: Prophylaxis against graft versus host disease
     Dosage: UNK
     Route: 042
     Dates: start: 20130921, end: 20130924
  8. CYTARABINE [Suspect]
     Active Substance: CYTARABINE
     Indication: Waldenstrom^s macroglobulinaemia
     Dosage: UNK
     Route: 042
     Dates: start: 20110501, end: 20110531
  9. DEXAMETHASONE [Suspect]
     Active Substance: DEXAMETHASONE
     Indication: Waldenstrom^s macroglobulinaemia
     Dosage: UNK
     Route: 048
     Dates: start: 20101001, end: 20130319
  10. VELCADE [Suspect]
     Active Substance: BORTEZOMIB
     Indication: Waldenstrom^s macroglobulinaemia
     Dosage: UNK
     Route: 058
     Dates: start: 20101001, end: 20150619
  11. MABTHERA [Suspect]
     Active Substance: RITUXIMAB
     Indication: Waldenstrom^s macroglobulinaemia
     Dosage: UNK
     Route: 042
     Dates: start: 20090601, end: 20100301
  12. THYMOGLOBULINE [Suspect]
     Active Substance: LAPINE T-LYMPHOCYTE IMMUNE GLOBULIN
     Indication: Waldenstrom^s macroglobulinaemia
     Dosage: UNK
     Route: 042
     Dates: start: 20130919, end: 20130919
  13. VINDESINE SULFATE [Suspect]
     Active Substance: VINDESINE SULFATE
     Indication: Waldenstrom^s macroglobulinaemia
     Dosage: UNK
     Route: 042
     Dates: start: 20130225, end: 20130225
  14. BUSULFAN [Suspect]
     Active Substance: BUSULFAN
     Indication: Waldenstrom^s macroglobulinaemia
     Dosage: UNK
     Route: 042
     Dates: start: 20130919, end: 20130919
  15. THALIDOMIDE [Suspect]
     Active Substance: THALIDOMIDE
     Indication: Waldenstrom^s macroglobulinaemia
     Dosage: UNK
     Route: 048
     Dates: start: 20101001, end: 20110301

REACTIONS (3)
  - Basal cell carcinoma [Recovered/Resolved]
  - Off label use [Unknown]
  - Intentional product use issue [Unknown]

NARRATIVE: CASE EVENT DATE: 20160901
